FAERS Safety Report 9922299 (Version 2)
Quarter: 2014Q1

REPORT INFORMATION
  Report Type: Spontaneous
  Country: JP (occurrence: JP)
  Receive Date: 20140225
  Receipt Date: 20140303
  Transmission Date: 20141002
  Serious: Yes (Hospitalization)
  Sender: FDA-Public Use
  Company Number: JP-GLAXOSMITHKLINE-B0971468A

PATIENT
  Age: 49 Year
  Sex: Female
  Weight: 45 kg

DRUGS (7)
  1. LAMICTAL [Suspect]
     Indication: PRODUCT USED FOR UNKNOWN INDICATION
     Route: 048
     Dates: start: 201203
  2. DEPAKENE-R [Concomitant]
     Route: 048
     Dates: start: 201203
  3. DORAL [Concomitant]
     Route: 048
     Dates: start: 201203
  4. AMOBAN [Concomitant]
     Route: 048
     Dates: start: 201203
  5. LINTON [Concomitant]
     Route: 065
     Dates: start: 201203
  6. SERENACE [Concomitant]
     Route: 065
     Dates: start: 201203
  7. AKINETON [Concomitant]
     Route: 065
     Dates: start: 201203

REACTIONS (18)
  - Drug-induced liver injury [Recovering/Resolving]
  - Dermoid cyst [Unknown]
  - Hepatic function abnormal [Unknown]
  - Abdominal pain [Recovered/Resolved]
  - Jaundice [Recovering/Resolving]
  - Pyrexia [Recovered/Resolved]
  - Anaemia [Unknown]
  - Rash [Recovered/Resolved]
  - Ocular icterus [Recovering/Resolving]
  - Cholestasis [Unknown]
  - Blood bilirubin increased [Unknown]
  - Hepatic cyst [Unknown]
  - Hyperplastic cholecystopathy [Unknown]
  - Renal cyst [Unknown]
  - Uterine leiomyoma [Unknown]
  - Lipoma [Unknown]
  - Teratoma [Unknown]
  - Constipation [Unknown]
